FAERS Safety Report 24301334 (Version 4)
Quarter: 2024Q3

REPORT INFORMATION
  Report Type: Spontaneous
  Country: CA (occurrence: CA)
  Receive Date: 20240910
  Receipt Date: 20240930
  Transmission Date: 20241016
  Serious: Yes (Hospitalization, Other)
  Sender: CELLTRION
  Company Number: CA-PFIZER INC-202400248821

PATIENT

DRUGS (20)
  1. INFLECTRA [Suspect]
     Active Substance: INFLIXIMAB-DYYB
     Indication: Colitis ulcerative
     Dosage: 10 MG/KG, REINDUCTION THEN MAINTENANCE EVERY 4 WEEKS
     Route: 042
     Dates: start: 20240809
  2. INFLECTRA [Suspect]
     Active Substance: INFLIXIMAB-DYYB
     Dosage: 10 MG/KG, REINDUCTION THEN MAINTENANCE EVERY 4 WEEKS
     Route: 042
     Dates: start: 20240809
  3. INFLECTRA [Suspect]
     Active Substance: INFLIXIMAB-DYYB
     Dosage: 10 MG/KG, REINDUCTION THEN MAINTENANCE EVERY 4 WEEKS
     Route: 042
     Dates: start: 20240809
  4. INFLECTRA [Suspect]
     Active Substance: INFLIXIMAB-DYYB
     Dosage: 10 MG/KG, REINDUCTION THEN MAINTENANCE EVERY 4 WEEKS
     Route: 042
     Dates: start: 20240809
  5. INFLECTRA [Suspect]
     Active Substance: INFLIXIMAB-DYYB
     Dosage: 10 MG/KG, REINDUCTION THEN MAINTENANCE EVERY 4 WEEKS
     Route: 042
     Dates: start: 20240809
  6. INFLECTRA [Suspect]
     Active Substance: INFLIXIMAB-DYYB
     Dosage: 660 MG, 5 WEEKS AND 6 DAYS (10 MG/KG, REINDUCTION THEN MAINTENANCE EVERY 4 WEEKS)
     Route: 042
     Dates: start: 20240919
  7. ATORVASTATIN [Concomitant]
     Active Substance: ATORVASTATIN
     Dosage: 20 MG
  8. BUPROPION [Concomitant]
     Active Substance: BUPROPION
     Dosage: 300 MG
  9. CLOPIDOGREL [Concomitant]
     Active Substance: CLOPIDOGREL BISULFATE
     Dosage: 75 MG
  10. PINAVERIUM BROMIDE [Concomitant]
     Active Substance: PINAVERIUM BROMIDE
     Dosage: 100 MG
  11. DAPAGLIFLOZIN [Concomitant]
     Active Substance: DAPAGLIFLOZIN
     Dosage: 10 MG
  12. HYDRO [HYDROCORTISONE] [Concomitant]
     Dosage: 25 MG
  13. IRON [Concomitant]
     Active Substance: IRON
     Dosage: 1 DF, DOSAGE INFORMATION NOT AVAILABLE INFUSION
     Route: 065
  14. METFORMIN [Concomitant]
     Active Substance: METFORMIN HYDROCHLORIDE
     Dosage: 500 MG
  15. METOPROLOL [Concomitant]
     Active Substance: METOPROLOL
     Dosage: 100 MG
  16. NEXIUM I.V. [Concomitant]
     Active Substance: ESOMEPRAZOLE SODIUM
     Dosage: 40 MG
  17. PERINDOPRIL [Concomitant]
     Active Substance: PERINDOPRIL
     Dosage: 8 MG
  18. ASPIRIN [Concomitant]
     Active Substance: ASPIRIN
     Dosage: 80 MG, FC
  19. FERROUS SULFATE [Concomitant]
     Active Substance: FERROUS SULFATE
     Dosage: 300 MG
  20. TAMSULOSIN [Concomitant]
     Active Substance: TAMSULOSIN
     Dosage: 0.4 MG

REACTIONS (4)
  - Hip fracture [Recovering/Resolving]
  - Wound [Recovering/Resolving]
  - Fall [Recovering/Resolving]
  - Condition aggravated [Not Recovered/Not Resolved]

NARRATIVE: CASE EVENT DATE: 20240101
